FAERS Safety Report 8589133-6 (Version None)
Quarter: 2012Q3

REPORT INFORMATION
  Report Type: 
  Country: None (occurrence: None)
  Receive Date: 20120731
  Receipt Date: 20120718
  Transmission Date: 20120928
  Serious: Yes (Hospitalization)
  Sender: FDA-Public Use
  Company Number: DSA_58680_2012

PATIENT
  Sex: Male

DRUGS (3)
  1. FLAGYL [Suspect]
     Indication: CHRONIC SINUSITIS
     Dosage: 500 MG BID ORAL
     Route: 048
     Dates: start: 20120509, end: 20120524
  2. ADVIL [Suspect]
     Indication: CHRONIC SINUSITIS
     Dosage: 200 MG QD, ORAL
     Route: 048
     Dates: start: 20120509, end: 20120524
  3. AUGMENTIN [Suspect]
     Indication: CHRONIC SINUSITIS
     Dosage: 1 G TID ORAL
     Route: 048
     Dates: start: 20120509, end: 20120524

REACTIONS (4)
  - CHOLANGITIS [None]
  - HEPATITIS [None]
  - CHOLESTASIS [None]
  - TOXOPLASMA SEROLOGY POSITIVE [None]
